FAERS Safety Report 8274172-5 (Version None)
Quarter: 2012Q2

REPORT INFORMATION
  Report Type: 
  Country: None (occurrence: None)
  Receive Date: 20120409
  Receipt Date: 20120330
  Transmission Date: 20120825
  Serious: Yes (Hospitalization, Other)
  Sender: FDA-Public Use
  Company Number: ADR-2010-9245

PATIENT
  Age: 12 Year
  Sex: Male
  Weight: 20 kg

DRUGS (2)
  1. TOPINA, SOLITA-T3, PERIACTIN, RIVOTRIL, DEPAKENE, RACOL [Concomitant]
  2. BACLOFEN [Suspect]
     Indication: MUSCLE SPASTICITY
     Dosage: ,DAILY, INTR
     Route: 037

REACTIONS (2)
  - JOINT DISLOCATION [None]
  - VOMITING [None]
